FAERS Safety Report 5400274-4 (Version None)
Quarter: 2007Q3

REPORT INFORMATION
  Report Type: 
  Country: None (occurrence: None)
  Receive Date: 20070730
  Receipt Date: 20070717
  Transmission Date: 20080115
  Serious: Yes (Hospitalization, Other)
  Sender: FDA-Public Use
  Company Number: KW-ROCHE-507509

PATIENT
  Age: 40 Year
  Sex: Male

DRUGS (8)
  1. MYCOPHENOLATE MOFETIL [Suspect]
     Route: 065
  2. TACROLIMUS [Suspect]
     Dosage: REPLACED CYCLOSPORIN IN MAINTENANCE THERAPY, 3 MONTHS POST-TRANSPLANT.
     Route: 065
  3. PREDNISOLONE [Suspect]
     Route: 048
  4. BASILIXIMAB [Suspect]
     Dosage: USED AS THE INDUCTION THERAPY IN THE IMMUNOSUPPRESSIVE TREATMENT.
     Route: 065
  5. CYCLOSPORINE [Suspect]
     Dosage: USED IN MAINTENANCE THERAPY FOR FIRST 3 MONTHS POST-TRANSPLANTATION.
     Route: 065
  6. METHYLPREDNISOLONE 4MG TAB [Suspect]
     Dosage: USED AS PULSE THERAPY FOR SEVERAL EPISODES OF ACUTE GRAFT REJECTION.
     Route: 065
  7. ORTHOCLONE OKT3 [Suspect]
     Dosage: 10 INJECTIONS OF OKT3 WERE GIVEN TO IN RESPONSE TO SEVERE GRAFT REJECTION, THREE MONTHS POST-TRANSP+
     Route: 065
  8. INSULIN [Concomitant]
     Indication: DIABETES MELLITUS

REACTIONS (10)
  - CHRONIC ALLOGRAFT NEPHROPATHY [None]
  - CROHN'S DISEASE [None]
  - DIABETES MELLITUS [None]
  - LOWER RESPIRATORY TRACT INFECTION [None]
  - LYMPHOPENIA [None]
  - SEPSIS [None]
  - SKIN INFECTION [None]
  - TRANSPLANT REJECTION [None]
  - UPPER RESPIRATORY TRACT INFECTION [None]
  - URINARY TRACT INFECTION [None]
